FAERS Safety Report 14332506 (Version 1)
Quarter: 2017Q4

REPORT INFORMATION
  Report Type: Spontaneous
  Country: AR (occurrence: AR)
  Receive Date: 20171228
  Receipt Date: 20171228
  Transmission Date: 20180321
  Serious: Yes (Other)
  Sender: FDA-Public Use
  Company Number: AR-BAYER-2017-221361

PATIENT
  Sex: Female

DRUGS (2)
  1. MIRENA [Suspect]
     Active Substance: LEVONORGESTREL
     Dosage: 20 MCG/24HR, CONT
     Route: 015
     Dates: start: 201710
  2. MIRENA [Suspect]
     Active Substance: LEVONORGESTREL

REACTIONS (8)
  - Procedural pain [Not Recovered/Not Resolved]
  - Pain [Unknown]
  - Genital haemorrhage [None]
  - Genital haemorrhage [Unknown]
  - Haemorrhagic anaemia [Not Recovered/Not Resolved]
  - Genital haemorrhage [Not Recovered/Not Resolved]
  - Device expulsion [Not Recovered/Not Resolved]
  - Feeling abnormal [None]

NARRATIVE: CASE EVENT DATE: 201710
